FAERS Safety Report 12275902 (Version 1)
Quarter: 2016Q2

REPORT INFORMATION
  Report Type: Spontaneous
  Country: US (occurrence: None)
  Receive Date: 20160415
  Receipt Date: 20160415
  Transmission Date: 20160815
  Serious: Yes (Other)
  Sender: FDA-Public Use
  Company Number: None

PATIENT
  Age: 50 Year
  Sex: Female
  Weight: 142.88 kg

DRUGS (1)
  1. IMATINIB MES TAB 400MG [Suspect]
     Active Substance: IMATINIB
     Indication: CHRONIC MYELOID LEUKAEMIA
     Route: 048

REACTIONS (6)
  - Arthralgia [None]
  - Weight increased [None]
  - Fatigue [None]
  - Myalgia [None]
  - Depression [None]
  - Cough [None]

NARRATIVE: CASE EVENT DATE: 20151015
